FAERS Safety Report 8217034-1 (Version None)
Quarter: 2012Q1

REPORT INFORMATION
  Report Type: 
  Country: None (occurrence: None)
  Receive Date: 20120319
  Receipt Date: 20120308
  Transmission Date: 20120608
  Serious: No
  Sender: FDA-Public Use
  Company Number: US-BIOGENIDEC-2010BI015536

PATIENT
  Sex: Female

DRUGS (4)
  1. TREXALL [Concomitant]
     Indication: MULTIPLE SCLEROSIS
  2. TYSABRI [Suspect]
     Route: 042
     Dates: start: 20090528, end: 20100122
  3. COPAXONE [Concomitant]
     Indication: MULTIPLE SCLEROSIS
  4. TYSABRI [Suspect]
     Indication: MULTIPLE SCLEROSIS
     Route: 042
     Dates: start: 20080215, end: 20090109

REACTIONS (7)
  - MYALGIA [None]
  - HEPATIC ENZYME INCREASED [None]
  - FATIGUE [None]
  - MEMORY IMPAIRMENT [None]
  - BLOOD CHOLESTEROL INCREASED [None]
  - MULTIPLE SCLEROSIS [None]
  - MUSCULAR WEAKNESS [None]
